FAERS Safety Report 8256471-6 (Version None)
Quarter: 2012Q1

REPORT INFORMATION
  Report Type: 
  Country: None (occurrence: None)
  Receive Date: 20120330
  Receipt Date: 20120323
  Transmission Date: 20120608
  Serious: Yes (Hospitalization)
  Sender: FDA-Public Use
  Company Number: 2012SP016263

PATIENT
  Age: 46 Year
  Sex: Male

DRUGS (2)
  1. REMERON [Suspect]
     Indication: PRODUCT USED FOR UNKNOWN INDICATION
     Dosage: 30 MG;ONCE;PO
     Route: 048
     Dates: start: 20110228, end: 20110228
  2. ALCOHOL (ETHANOL) [Suspect]
     Indication: PRODUCT USED FOR UNKNOWN INDICATION
     Dates: start: 20110228, end: 20110228

REACTIONS (9)
  - RESPIRATORY FAILURE [None]
  - COMA [None]
  - SUICIDE ATTEMPT [None]
  - OVERDOSE [None]
  - POISONING [None]
  - SOMNOLENCE [None]
  - OXYGEN SATURATION DECREASED [None]
  - TONGUE DISORDER [None]
  - OBSTRUCTIVE AIRWAYS DISORDER [None]
